FAERS Safety Report 4907972-7 (Version None)
Quarter: 2006Q1

REPORT INFORMATION
  Report Type: 
  Country: None (occurrence: None)
  Receive Date: 20060207
  Receipt Date: 20060127
  Transmission Date: 20060701
  Serious: Yes (Hospitalization)
  Sender: FDA-Public Use
  Company Number: RENA-11672

PATIENT
  Age: 80 Year
  Sex: Female

DRUGS (7)
  1. RENAGEL [Suspect]
     Indication: HYPERPHOSPHATAEMIA
     Dosage: 2.4 G TID PO
     Route: 048
     Dates: start: 20040101
  2. PRAVACHOL [Concomitant]
  3. AVANDIA [Concomitant]
  4. PRANDIN [Concomitant]
  5. NEPHROCAPS [Concomitant]
  6. AVOCET [Concomitant]
  7. NITROGLYCERIN [Concomitant]

REACTIONS (3)
  - ANGINA PECTORIS [None]
  - BREAST LUMP REMOVAL [None]
  - CARPAL TUNNEL DECOMPRESSION [None]
